FAERS Safety Report 9650739 (Version 1)
Quarter: 2013Q4

REPORT INFORMATION
  Report Type: Spontaneous
  Country: US (occurrence: US)
  Receive Date: 20131029
  Receipt Date: 20131029
  Transmission Date: 20140711
  Serious: No
  Sender: FDA-Public Use
  Company Number: US-009507513-1310USA011723

PATIENT
  Age: 11 Year
  Sex: Male
  Weight: 52 kg

DRUGS (7)
  1. BENZTROPINE MESYLATE [Suspect]
     Indication: POISONING
     Route: 048
  2. ZOCOR [Suspect]
     Indication: POISONING
     Route: 048
  3. FOLIC ACID [Suspect]
     Indication: POISONING
  4. QUETIAPINE FUMARATE [Suspect]
     Indication: POISONING
  5. THIAMINE [Suspect]
     Indication: POISONING
  6. PRILOSEC [Suspect]
     Indication: POISONING
     Route: 048
  7. RISPERIDONE [Suspect]
     Indication: POISONING

REACTIONS (8)
  - Delirium [Recovered/Resolved]
  - Intentional drug misuse [Unknown]
  - Sinus tachycardia [Recovered/Resolved]
  - Mydriasis [Recovered/Resolved]
  - Mucosal dryness [Recovered/Resolved]
  - Anhidrosis [Recovered/Resolved]
  - Agitation [Recovered/Resolved]
  - Confusional state [Recovered/Resolved]
